FAERS Safety Report 18000209 (Version 2)
Quarter: 2020Q3

REPORT INFORMATION
  Report Type: Spontaneous
  Country: US (occurrence: US)
  Receive Date: 20200709
  Receipt Date: 20200720
  Transmission Date: 20201103
  Serious: Yes (Hospitalization, Other)
  Sender: FDA-Public Use
  Company Number: US-PFIZER INC-2020261671

PATIENT
  Age: 83 Year
  Sex: Female
  Weight: 58.96 kg

DRUGS (1)
  1. PREMARIN [Suspect]
     Active Substance: ESTROGENS, CONJUGATED
     Indication: HOT FLUSH
     Dosage: 0.625 MG, 2X/WEEK [3 TIMES A WEEK AND SHE ONLY TAKES 2 A WEEK]
     Route: 048

REACTIONS (13)
  - Incontinence [Not Recovered/Not Resolved]
  - Head injury [Unknown]
  - Pruritus [Recovering/Resolving]
  - Depressed mood [Unknown]
  - Vertigo [Unknown]
  - Fall [Unknown]
  - Wound infection [Not Recovered/Not Resolved]
  - Vulvovaginal pruritus [Recovering/Resolving]
  - Intentional product misuse [Unknown]
  - Loss of consciousness [Unknown]
  - Feeling abnormal [Unknown]
  - Pain [Not Recovered/Not Resolved]
  - Intervertebral disc degeneration [Unknown]

NARRATIVE: CASE EVENT DATE: 20190829
